FAERS Safety Report 5689178-X (Version None)
Quarter: 2008Q1

REPORT INFORMATION
  Report Type: 
  Country: None (occurrence: None)
  Receive Date: 20080331
  Receipt Date: 20080324
  Transmission Date: 20080703
  Serious: Yes (Hospitalization)
  Sender: FDA-Public Use
  Company Number: BR-ABBOTT-08P-020-0443944-00

PATIENT
  Age: 57 Year
  Sex: Female

DRUGS (1)
  1. SIBUTRAMINE [Suspect]
     Indication: WEIGHT CONTROL
     Route: 048
     Dates: start: 20070801

REACTIONS (6)
  - CEREBRAL DISORDER [None]
  - DEMYELINATION [None]
  - DYSPHONIA [None]
  - MUSCLE CONTRACTURE [None]
  - NERVOUS SYSTEM DISORDER [None]
  - QUADRIPLEGIA [None]
